FAERS Safety Report 26033950 (Version 2)
Quarter: 2025Q4

REPORT INFORMATION
  Report Type: Spontaneous
  Country: EU (occurrence: EU)
  Receive Date: 20251112
  Receipt Date: 20251127
  Transmission Date: 20260118
  Serious: Yes (Hospitalization, Other)
  Sender: AUROBINDO
  Company Number: EU-MLMSERVICE-20251022-PI684955-00271-1

PATIENT
  Age: 53 Year
  Sex: Male

DRUGS (2)
  1. PREDNISONE [Suspect]
     Active Substance: PREDNISONE
     Indication: Myelodysplastic syndrome
     Dosage: 10 MILLIGRAM, ONCE A DAY
     Route: 065
  2. PREDNISONE [Suspect]
     Active Substance: PREDNISONE
     Indication: Glomerulonephritis membranoproliferative
     Dosage: 1 MILLIGRAM/KILOGRAM, ONCE A DAY

REACTIONS (3)
  - Visceral leishmaniasis [Recovered/Resolved]
  - Cutaneous leishmaniasis [Recovered/Resolved]
  - Infection reactivation [Recovered/Resolved]
